FAERS Safety Report 9906715 (Version 2)
Quarter: 2014Q1

REPORT INFORMATION
  Report Type: Spontaneous
  Country: US (occurrence: US)
  Receive Date: 20140218
  Receipt Date: 20140312
  Transmission Date: 20141002
  Serious: Yes (Other)
  Sender: FDA-Public Use
  Company Number: US-PFIZER INC-2014043224

PATIENT
  Age: 86 Year
  Sex: Male

DRUGS (5)
  1. LYRICA [Suspect]
     Dosage: 25 MG, 3X/DAY
     Route: 048
  2. LYRICA [Suspect]
     Dosage: 50 MG, 2X/DAY
     Route: 048
  3. VITAMIN D [Concomitant]
     Dosage: UNK
  4. GLUCOSAMINE [Concomitant]
     Dosage: UNK
  5. CENTRUM SILVER [Concomitant]
     Dosage: UNK

REACTIONS (3)
  - Diabetes mellitus [Unknown]
  - Arthropathy [Unknown]
  - Skin ulcer [Unknown]
